FAERS Safety Report 8607147 (Version 3)
Quarter: 2013Q4

REPORT INFORMATION
  Report Type: Spontaneous
  Country: US (occurrence: US)
  Receive Date: 20120611
  Receipt Date: 20131011
  Transmission Date: 20140711
  Serious: Yes (Hospitalization, Disabling, Other)
  Sender: FDA-Public Use
  Company Number: US-ASTRAZENECA-2012SE36246

PATIENT
  Age: 66 Year
  Sex: Female
  Weight: 85.7 kg

DRUGS (16)
  1. NEXIUM [Suspect]
     Dosage: THREE TIMES A DAY
     Route: 048
     Dates: start: 1985, end: 2006
  2. NEXIUM [Suspect]
     Dosage: 7 TO 8 YEARS APPROXIMATELY
     Route: 048
     Dates: start: 1987, end: 1994
  3. NEXIUM [Suspect]
     Dosage: 1 TIMES A DAY APPROXIMATELY
     Route: 048
     Dates: start: 1989
  4. NEXIUM [Suspect]
     Route: 048
     Dates: start: 20060915
  5. PRILOSEC [Suspect]
     Dosage: 1 TIMES A DAY APPROXIMATELY
     Dates: start: 1996
  6. PREVACID [Concomitant]
     Dosage: 2 OR 3 TIMES A DAY APPROXIMATELY
     Dates: start: 1985
  7. PREVACID [Concomitant]
     Dosage: 3 TO 4 YEARS APPROXIMATELY
     Dates: start: 1990, end: 1995
  8. ZANTAC [Concomitant]
     Dates: start: 1986
  9. TAGAMET [Concomitant]
     Dates: start: 1986
  10. PEPCID [Concomitant]
     Dates: start: 1986
  11. PEPTO-BISMOL [Concomitant]
  12. ROLAIDS [Concomitant]
  13. MYLANTA [Concomitant]
  14. TUMS/CALTRATE [Concomitant]
     Indication: OSTEOPOROSIS
  15. MILK OF MAGNESIA [Concomitant]
  16. FOSAMAX [Concomitant]

REACTIONS (12)
  - Pelvic fracture [Unknown]
  - Foot fracture [Unknown]
  - Rib fracture [Unknown]
  - Bronchitis [Unknown]
  - Arthropathy [Unknown]
  - Osteoporosis [Unknown]
  - Wrist fracture [Unknown]
  - Multiple fractures [Unknown]
  - Sternal fracture [Unknown]
  - Arthritis [Unknown]
  - Cataract [Unknown]
  - Chronic obstructive pulmonary disease [Unknown]
